FAERS Safety Report 7723307-9 (Version None)
Quarter: 2011Q3

REPORT INFORMATION
  Report Type: 
  Country: None (occurrence: None)
  Receive Date: 20110901
  Receipt Date: 20110901
  Transmission Date: 20111222
  Serious: Yes (Hospitalization)
  Sender: FDA-Public Use
  Company Number: None

PATIENT
  Sex: Female
  Weight: 68.038 kg

DRUGS (1)
  1. DIVALPROEX SODIUM [Suspect]
     Indication: MANIA
     Dosage: 1000 MG
     Route: 048
     Dates: start: 20110818, end: 20110825

REACTIONS (2)
  - TOXICITY TO VARIOUS AGENTS [None]
  - HYPERAMMONAEMIA [None]
